FAERS Safety Report 17894336 (Version 1)
Quarter: 2020Q2

REPORT INFORMATION
  Report Type: Report from Study
  Country: US (occurrence: US)
  Receive Date: 20200615
  Receipt Date: 20200615
  Transmission Date: 20200714
  Serious: Yes (Other)
  Sender: FDA-Public Use
  Company Number: US-ROCHE-2621830

PATIENT
  Sex: Female

DRUGS (3)
  1. ACTEMRA [Suspect]
     Active Substance: TOCILIZUMAB
     Indication: TEMPORAL ARTERITIS
     Route: 058
  2. ACTEMRA [Suspect]
     Active Substance: TOCILIZUMAB
     Indication: RED BLOOD CELL SEDIMENTATION RATE INCREASED
  3. ACTEMRA [Suspect]
     Active Substance: TOCILIZUMAB
     Indication: STEROID THERAPY

REACTIONS (1)
  - Autoimmune disorder [Unknown]
